FAERS Safety Report 9954940 (Version 2)
Quarter: 2014Q1

REPORT INFORMATION
  Report Type: Report from Study
  Country: US (occurrence: US)
  Receive Date: 20140304
  Receipt Date: 20140304
  Transmission Date: 20141002
  Serious: No
  Sender: FDA-Public Use
  Company Number: US-ABBVIE-12P-163-1017753-00

PATIENT
  Age: 46 Year
  Sex: Female

DRUGS (8)
  1. HUMIRA [Suspect]
     Indication: RHEUMATOID ARTHRITIS
     Route: 058
     Dates: start: 20121103
  2. GABAPENTIN [Concomitant]
     Indication: FIBROMYALGIA
  3. ELAVIL [Concomitant]
     Indication: FIBROMYALGIA
     Dosage: 100MG AT HS
  4. SIMVASTATIN [Concomitant]
     Indication: BLOOD CHOLESTEROL INCREASED
  5. METHOTREXATE [Concomitant]
     Indication: RHEUMATOID ARTHRITIS
     Dosage: 6 PILLS ONE TIME PER WEEK
  6. FOLIC ACID [Concomitant]
     Indication: RHEUMATOID ARTHRITIS
  7. CYCLOBENZAPRINE [Concomitant]
     Indication: FIBROMYALGIA
  8. HYDROCODONE [Concomitant]
     Indication: PAIN
     Dosage: 2-4 TIMES PER DAY

REACTIONS (1)
  - Injection site pain [Recovering/Resolving]
